FAERS Safety Report 22876792 (Version 2)
Quarter: 2025Q4

REPORT INFORMATION
  Report Type: Spontaneous
  Country: US (occurrence: US)
  Receive Date: 20230829
  Receipt Date: 20251106
  Transmission Date: 20260117
  Serious: No
  Sender: PFIZER
  Company Number: US-PFIZER INC-PV202300146612

PATIENT
  Age: 56 Year
  Sex: Female

DRUGS (1)
  1. XELJANZ [Suspect]
     Active Substance: TOFACITINIB CITRATE
     Indication: Crohn^s disease
     Dosage: 10 MG, 2X/DAY
     Route: 048
     Dates: start: 20230327

REACTIONS (4)
  - Chest discomfort [Unknown]
  - Peripheral swelling [Unknown]
  - Pain in extremity [Unknown]
  - Off label use [Unknown]
